FAERS Safety Report 12423113 (Version 1)
Quarter: 2016Q2

REPORT INFORMATION
  Report Type: Spontaneous
  Country: US (occurrence: None)
  Receive Date: 20160531
  Receipt Date: 20160531
  Transmission Date: 20160815
  Serious: No
  Sender: FDA-Public Use
  Company Number: None

PATIENT
  Age: 39 Year
  Sex: Female
  Weight: 70.31 kg

DRUGS (1)
  1. FLUTICASONE PROPRIONATE [Suspect]
     Active Substance: FLUTICASONE PROPIONATE
     Indication: SINUSITIS
     Route: 045
     Dates: start: 20160509, end: 20160523

REACTIONS (4)
  - Chest discomfort [None]
  - Cough [None]
  - Drug ineffective [None]
  - Pain [None]

NARRATIVE: CASE EVENT DATE: 20160523
